FAERS Safety Report 22188998 (Version 1)
Quarter: 2023Q2

REPORT INFORMATION
  Report Type: Report from Study
  Country: US (occurrence: US)
  Receive Date: 20230409
  Receipt Date: 20230409
  Transmission Date: 20230721
  Serious: Yes (Hospitalization)
  Sender: FDA-Public Use
  Company Number: US-ABBVIE-4720398

PATIENT
  Sex: Male

DRUGS (1)
  1. VENCLEXTA [Suspect]
     Active Substance: VENETOCLAX
     Indication: Acute myeloid leukaemia
     Dosage: TAKE 1 TABLET BY MOUTH ONCE DAILY WITH FOOD AND A FULL GLASS OF WATER FOR 14 DAYS ON THEN 14 DAYS...
     Route: 048

REACTIONS (1)
  - Cellulitis [Recovered/Resolved]
